FAERS Safety Report 9801029 (Version 5)
Quarter: 2014Q1

REPORT INFORMATION
  Report Type: Report from Study
  Country: JP (occurrence: JP)
  Receive Date: 20140107
  Receipt Date: 20140121
  Transmission Date: 20141002
  Serious: Yes (Hospitalization)
  Sender: FDA-Public Use
  Company Number: JP-UCBSA-107591

PATIENT
  Age: 48 Year
  Sex: Female
  Weight: 45.6 kg

DRUGS (8)
  1. CERTOLIZUMAB PEGOL [Suspect]
     Indication: RHEUMATOID ARTHRITIS
     Route: 058
     Dates: start: 20130723
  2. PLACEBO [Suspect]
     Indication: RHEUMATOID ARTHRITIS
     Route: 058
     Dates: start: 20120226
  3. RHEUMATREX [Suspect]
     Indication: RHEUMATOID ARTHRITIS
     Route: 048
     Dates: start: 20130917
  4. LOXOPROFEN SODIUM HYDRATE [Concomitant]
     Indication: RHEUMATOID ARTHRITIS
     Dosage: 60 MG/DAY
     Route: 048
     Dates: start: 20130625
  5. REBAMIPIDE [Concomitant]
     Indication: GASTRITIS PROPHYLAXIS
     Dosage: 100 MG/DAY
     Route: 048
     Dates: start: 20131012
  6. TAKEPRON [Concomitant]
     Indication: GASTRITIS PROPHYLAXIS
     Dosage: 15 MG/DAY
     Route: 048
     Dates: start: 20120207
  7. FOLIAMIN [Concomitant]
     Indication: PROPHYLAXIS
     Dosage: 5 MG/WEEK
     Route: 048
     Dates: start: 20120209
  8. FEROTYM [Concomitant]
     Indication: ANAEMIA
     Dosage: 50 MG/DAY
     Route: 048
     Dates: start: 20131025

REACTIONS (1)
  - Peritonsillar abscess [Recovered/Resolved]
